FAERS Safety Report 18173705 (Version 3)
Quarter: 2020Q4

REPORT INFORMATION
  Report Type: Spontaneous
  Country: US (occurrence: US)
  Receive Date: 20200820
  Receipt Date: 20201028
  Transmission Date: 20210113
  Serious: No
  Sender: FDA-Public Use
  Company Number: US-ASTRAZENECA-2020SE85594

PATIENT
  Age: 68 Year
  Sex: Male

DRUGS (1)
  1. BYDUREON BCISE [Suspect]
     Active Substance: EXENATIDE
     Indication: GLYCOSYLATED HAEMOGLOBIN DECREASED
     Dosage: 2.0MG UNKNOWN
     Route: 065
     Dates: start: 201807, end: 202007

REACTIONS (5)
  - Injection site pain [Unknown]
  - Device leakage [Not Recovered/Not Resolved]
  - Drug dose omission by device [Unknown]
  - Injection site haemorrhage [Unknown]
  - Injection site mass [Unknown]
